FAERS Safety Report 8051955-8 (Version None)
Quarter: 2012Q1

REPORT INFORMATION
  Report Type: 
  Country: None (occurrence: None)
  Receive Date: 20120118
  Receipt Date: 20120113
  Transmission Date: 20120608
  Serious: Yes (Hospitalization, Disabling)
  Sender: FDA-Public Use
  Company Number: US-JNJFOC-20120105413

PATIENT
  Sex: Female

DRUGS (2)
  1. DURAGESIC-100 [Suspect]
     Indication: PRODUCT USED FOR UNKNOWN INDICATION
     Route: 062
  2. UNKNOWN MEDICATION [Concomitant]
     Route: 065

REACTIONS (6)
  - ADVERSE EVENT [None]
  - MALAISE [None]
  - DISABILITY [None]
  - HOSPITALISATION [None]
  - FATIGUE [None]
  - DRUG INEFFECTIVE [None]
